FAERS Safety Report 5397998-4 (Version None)
Quarter: 2007Q3

REPORT INFORMATION
  Report Type: 
  Country: None (occurrence: None)
  Receive Date: 20070726
  Receipt Date: 20070720
  Transmission Date: 20080115
  Serious: Yes (Other)
  Sender: FDA-Public Use
  Company Number: US-ASTRAZENECA-2007UW17334

PATIENT
  Age: 80 Year
  Sex: Male
  Weight: 90.7 kg

DRUGS (5)
  1. CASODEX [Suspect]
     Indication: PROSTATE CANCER
     Route: 048
     Dates: start: 20070401
  2. DIGOXIN [Concomitant]
  3. TOPROL-XL [Concomitant]
     Route: 048
  4. ALTACE [Concomitant]
  5. HYDROCHLOROTHIAZIDE [Concomitant]
     Dates: start: 20070701

REACTIONS (3)
  - CELLULITIS [None]
  - ERYTHEMA [None]
  - OEDEMA PERIPHERAL [None]
